FAERS Safety Report 8594915 (Version 5)
Quarter: 2012Q4

REPORT INFORMATION
  Report Type: 
  Country: US (occurrence: US)
  Receive Date: 20120517
  Receipt Date: 20120917
  Transmission Date: 20130627
  Serious: Yes (Other)
  Sender: FDA-Public Use
  Company Number: US-009507513-2012SP019470

PATIENT
  Sex: Female

DRUGS (5)
  1. DULERA [Suspect]
     Dosage: 100/5 mcg, BID
     Route: 055
     Dates: start: 20111221, end: 20120130
  2. SINGULAIR [Concomitant]
     Dosage: 10 mg, UNK
  3. PROVENTIL [Concomitant]
  4. AZITHROMYCIN [Concomitant]
     Dosage: 250 mg, QD
  5. PREDNISONE [Concomitant]

REACTIONS (9)
  - Emotional distress [Recovered/Resolved]
  - Anxiety [Recovered/Resolved]
  - Oral candidiasis [Recovered/Resolved]
  - Blood sodium increased [Not Recovered/Not Resolved]
  - Sinusitis [Recovered/Resolved]
  - Headache [Recovered/Resolved]
  - Adverse event [Unknown]
  - Aphasia [None]
  - Gingival bleeding [None]
